FAERS Safety Report 4276070-0 (Version None)
Quarter: 2004Q1

REPORT INFORMATION
  Report Type: 
  Country: None (occurrence: None)
  Receive Date: 20040121
  Receipt Date: 20030801
  Transmission Date: 20041129
  Serious: No
  Sender: FDA-Public Use
  Company Number: US-GLAXOSMITHKLINE-A0419793A

PATIENT
  Age: 27 Year
  Sex: Male

DRUGS (3)
  1. VALTREX [Suspect]
     Dosage: 1G PER DAY
     Route: 048
     Dates: start: 20030727, end: 20030728
  2. IBUPROFEN [Concomitant]
  3. TYLENOL PM [Concomitant]

REACTIONS (4)
  - FEELING ABNORMAL [None]
  - PRURITUS GENERALISED [None]
  - SKIN ULCER [None]
  - SWELLING FACE [None]
